FAERS Safety Report 22604640 (Version 3)
Quarter: 2024Q2

REPORT INFORMATION
  Report Type: Spontaneous
  Country: US (occurrence: US)
  Receive Date: 20230615
  Receipt Date: 20240620
  Transmission Date: 20240716
  Serious: No
  Sender: FDA-Public Use
  Company Number: US-SA-SAC20230614001078

PATIENT
  Age: 64 Year
  Sex: Female

DRUGS (1)
  1. DUPIXENT [Suspect]
     Active Substance: DUPILUMAB
     Indication: Eosinophilic oesophagitis
     Dosage: 300 MG, QW
     Route: 058
     Dates: start: 202303

REACTIONS (5)
  - Respiration abnormal [Unknown]
  - Lactose intolerance [Unknown]
  - Allergy to plants [Unknown]
  - Rubber sensitivity [Unknown]
  - Milk allergy [Unknown]

NARRATIVE: CASE EVENT DATE: 20230101
